FAERS Safety Report 13406105 (Version 1)
Quarter: 2017Q2

REPORT INFORMATION
  Report Type: Spontaneous
  Country: FR (occurrence: FR)
  Receive Date: 20170405
  Receipt Date: 20170405
  Transmission Date: 20170830
  Serious: Yes (Hospitalization)
  Sender: FDA-Public Use
  Company Number: FR-JNJFOC-20170400523

PATIENT
  Age: 43 Year
  Sex: Female

DRUGS (7)
  1. PEGASYS [Suspect]
     Active Substance: PEGINTERFERON ALFA-2A
     Indication: PRODUCT USED FOR UNKNOWN INDICATION
     Route: 065
     Dates: start: 201608, end: 201701
  2. REMICADE [Suspect]
     Active Substance: INFLIXIMAB
     Indication: BEHCET^S SYNDROME
     Route: 042
     Dates: start: 201304, end: 201404
  3. INTERFERON [Suspect]
     Active Substance: INTERFERON
     Indication: PRODUCT USED FOR UNKNOWN INDICATION
     Route: 065
     Dates: start: 201603, end: 201608
  4. METHOTREXATE. [Concomitant]
     Active Substance: METHOTREXATE
     Route: 065
     Dates: start: 2007, end: 2012
  5. REMICADE [Suspect]
     Active Substance: INFLIXIMAB
     Indication: BEHCET^S SYNDROME
     Route: 042
     Dates: start: 201508, end: 201510
  6. SIMPONI [Suspect]
     Active Substance: GOLIMUMAB
     Indication: BEHCET^S SYNDROME
     Route: 058
     Dates: start: 201404, end: 201508
  7. METHOTREXATE. [Concomitant]
     Active Substance: METHOTREXATE
     Route: 065
     Dates: start: 2014, end: 201508

REACTIONS (7)
  - Natural killer-cell lymphoblastic lymphoma [Not Recovered/Not Resolved]
  - Benign pancreatic neoplasm [Unknown]
  - Behcet^s syndrome [Unknown]
  - Off label use [Unknown]
  - Product use in unapproved indication [Unknown]
  - Colon adenoma [Unknown]
  - Ductal adenocarcinoma of pancreas [Unknown]

NARRATIVE: CASE EVENT DATE: 201304
